FAERS Safety Report 8596273-4 (Version None)
Quarter: 2012Q3

REPORT INFORMATION
  Report Type: 
  Country: None (occurrence: None)
  Receive Date: 20120815
  Receipt Date: 20120801
  Transmission Date: 20120928
  Serious: Yes (Hospitalization)
  Sender: FDA-Public Use
  Company Number: US-ARROW-2012-13730

PATIENT
  Sex: Female
  Weight: 67.6 kg

DRUGS (7)
  1. FLONASE [Concomitant]
     Indication: ASTHMA
     Dosage: 2 UNK, UNK
     Route: 055
  2. QVAR 40 [Concomitant]
     Indication: ASTHMA
     Dosage: 1 UNK, UNK
     Route: 055
  3. AMLODIPINE [Concomitant]
     Indication: BLOOD PRESSURE
     Dosage: UNK MG, DAILY
     Route: 048
  4. SYNTHROID [Concomitant]
     Indication: THYROID DISORDER
     Dosage: 0.137 UNK, UNK
     Route: 048
  5. ESTRADIOL [Concomitant]
     Indication: HORMONE REPLACEMENT THERAPY
     Dosage: 1 UNK, UNK
     Route: 048
  6. FENTANYL-50 [Suspect]
     Indication: BACK PAIN
     Dosage: 1 PATCH, 72H
     Route: 062
     Dates: start: 20120601
  7. HYDROCODONE BITARTRATE + ACETAMINOPHEN [Suspect]
     Indication: BACK PAIN
     Dosage: 1 TABLET, TID
     Route: 048
     Dates: start: 20120401, end: 20120723

REACTIONS (4)
  - VOMITING [None]
  - CHEST PAIN [None]
  - FLATULENCE [None]
  - WEIGHT DECREASED [None]
